FAERS Safety Report 24332213 (Version 1)
Quarter: 2024Q3

REPORT INFORMATION
  Report Type: Spontaneous
  Country: IN (occurrence: IN)
  Receive Date: 20240918
  Receipt Date: 20240918
  Transmission Date: 20241017
  Serious: Yes (Hospitalization)
  Sender: STRIDES
  Company Number: IN-STRIDES ARCOLAB LIMITED-2024SP011823

PATIENT
  Age: 45 Year
  Sex: Male

DRUGS (3)
  1. CYCLOSPORINE [Suspect]
     Active Substance: CYCLOSPORINE
     Indication: Vogt-Koyanagi-Harada disease
     Dosage: UNK
     Route: 065
  2. AZATHIOPRINE [Suspect]
     Active Substance: AZATHIOPRINE
     Indication: Vogt-Koyanagi-Harada disease
     Dosage: UNK
     Route: 048
  3. TOFACITINIB [Suspect]
     Active Substance: TOFACITINIB
     Indication: Vogt-Koyanagi-Harada disease
     Dosage: 5 MILLIGRAM, BID
     Route: 048

REACTIONS (2)
  - Liver function test abnormal [Unknown]
  - Drug ineffective for unapproved indication [Unknown]
